FAERS Safety Report 7438674-3 (Version None)
Quarter: 2011Q2

REPORT INFORMATION
  Report Type: 
  Country: None (occurrence: None)
  Receive Date: 20110426
  Receipt Date: 20110421
  Transmission Date: 20111010
  Serious: Yes (Hospitalization)
  Sender: FDA-Public Use
  Company Number: US-PFIZER INC-US-WYE-H13490410

PATIENT
  Age: 76 Year
  Sex: Female

DRUGS (8)
  1. XANAX [Suspect]
     Dosage: UNKNOWN
     Route: 065
  2. SPRYCEL [Suspect]
     Indication: BREAST CANCER METASTATIC
     Dosage: 100.0 MG, 1X/DAY
     Route: 048
     Dates: start: 20091030, end: 20091215
  3. OXYCODONE [Suspect]
     Dosage: UNKNOWN
     Route: 065
  4. ZOLPIDEM [Suspect]
     Dosage: UNKNOWN
     Route: 065
  5. PROTONIX [Suspect]
     Dosage: UNKNOWN
     Route: 065
  6. MIRALAX [Suspect]
     Dosage: UNKNOWN
     Route: 065
  7. SPRYCEL [Suspect]
     Dosage: 70.0 MG, 1X/DAY
     Route: 048
     Dates: start: 20091216, end: 20100105
  8. EFFEXOR [Suspect]
     Dosage: UNKNOWN
     Route: 065

REACTIONS (1)
  - ESCHERICHIA URINARY TRACT INFECTION [None]
